FAERS Safety Report 8184712-2 (Version None)
Quarter: 2012Q1

REPORT INFORMATION
  Report Type: 
  Country: None (occurrence: None)
  Receive Date: 20120305
  Receipt Date: 20120305
  Transmission Date: 20120608
  Serious: No
  Sender: FDA-Public Use
  Company Number: None

PATIENT
  Age: 83 Year
  Sex: Female
  Weight: 68.038 kg

DRUGS (1)
  1. LOSARTAN POTASSIUM [Suspect]
     Indication: HYPERTENSION
     Dosage: 100.0 MG
     Route: 048
     Dates: start: 20110607, end: 20120227

REACTIONS (8)
  - DYSPEPSIA [None]
  - CONSTIPATION [None]
  - ABDOMINAL DISTENSION [None]
  - DRY MOUTH [None]
  - PRODUCT SUBSTITUTION ISSUE [None]
  - ABDOMINAL DISCOMFORT [None]
  - BLOOD PRESSURE INADEQUATELY CONTROLLED [None]
  - CANDIDIASIS [None]
